FAERS Safety Report 21402371 (Version 1)
Quarter: 2022Q4

REPORT INFORMATION
  Report Type: Other
  Country: DE (occurrence: DE)
  Receive Date: 20221003
  Receipt Date: 20221003
  Transmission Date: 20230113
  Serious: No
  Sender: FDA-Public Use
  Company Number: None

PATIENT
  Age: 61 Year
  Sex: Male
  Weight: 88 kg

DRUGS (2)
  1. TADALAFIL [Suspect]
     Active Substance: TADALAFIL
     Indication: Prostatic disorder
     Dosage: 5 MG, QD
     Route: 048
     Dates: start: 20220913, end: 20220915
  2. TADALAFIL [Suspect]
     Active Substance: TADALAFIL
     Dosage: 5 MG, QD
     Route: 048
     Dates: start: 20220917, end: 20220917

REACTIONS (1)
  - Myalgia [Recovered/Resolved]

NARRATIVE: CASE EVENT DATE: 20220915
